FAERS Safety Report 17674865 (Version 3)
Quarter: 2021Q2

REPORT INFORMATION
  Report Type: Spontaneous
  Country: US (occurrence: US)
  Receive Date: 20200416
  Receipt Date: 20210610
  Transmission Date: 20210716
  Serious: No
  Sender: FDA-Public Use
  Company Number: US-PFIZER INC-2020155132

PATIENT
  Age: 53 Year
  Sex: Female
  Weight: 102.97 kg

DRUGS (3)
  1. ESTRING [Suspect]
     Active Substance: ESTRADIOL
     Indication: ATROPHIC VULVOVAGINITIS
     Dosage: UNK
  2. ESTRING [Suspect]
     Active Substance: ESTRADIOL
     Indication: URETHRITIS
     Dosage: 2 MG(2MG; INSERTED VAGINALLY, EVERY 3 MONTHS)
     Route: 067
     Dates: start: 201909
  3. ESTRING [Suspect]
     Active Substance: ESTRADIOL
     Dosage: UNK
     Dates: start: 20210414

REACTIONS (3)
  - Genital discomfort [Unknown]
  - Therapeutic product effect incomplete [Unknown]
  - Vulvovaginal burning sensation [Unknown]
